FAERS Safety Report 6255658-1 (Version None)
Quarter: 2009Q3

REPORT INFORMATION
  Report Type: 
  Country: None (occurrence: None)
  Receive Date: 20090701
  Receipt Date: 20090622
  Transmission Date: 20100115
  Serious: No
  Sender: FDA-Public Use
  Company Number: 2009007449

PATIENT

DRUGS (1)
  1. FENTORA [Suspect]
     Indication: PAIN
     Dosage: 800 MCG, 4-6 X DAILY, BU
     Route: 002

REACTIONS (1)
  - MEDICATION ERROR [None]
